FAERS Safety Report 6204518-0 (Version None)
Quarter: 2009Q2

REPORT INFORMATION
  Report Type: 
  Country: None (occurrence: None)
  Receive Date: 20090522
  Receipt Date: 20090312
  Transmission Date: 20091009
  Serious: Yes (Congenital Anomaly)
  Sender: FDA-Public Use
  Company Number: GXKR2009US03625

PATIENT

DRUGS (1)
  1. MICONAZOLE     (NGX)   (MICONAZOLE) UNKNOWN [Suspect]
     Dosage: TRANSPLACENTAL
     Route: 064

REACTIONS (2)
  - CONGENITAL DIAPHRAGMATIC HERNIA [None]
  - MATERNAL DRUGS AFFECTING FOETUS [None]
